FAERS Safety Report 19837379 (Version 2)
Quarter: 2021Q4

REPORT INFORMATION
  Report Type: Spontaneous
  Country: US (occurrence: US)
  Receive Date: 20210915
  Receipt Date: 20211109
  Transmission Date: 20220303
  Serious: No
  Sender: FDA-Public Use
  Company Number: US-GW PHARMA-202109USGW04383

PATIENT

DRUGS (3)
  1. EPIDIOLEX [Suspect]
     Active Substance: CANNABIDIOL
     Indication: Partial seizures
     Dosage: 350 MILLIGRAM, QD (150 MILLIGRAM EVERY MORNING AND 200 MILLIGRAM EVERY EVENING AT BEDTIME)
     Route: 048
     Dates: start: 201903
  2. EPIDIOLEX [Suspect]
     Active Substance: CANNABIDIOL
     Indication: Epilepsy
     Dosage: 27.97 MG/KG/DAY, 250 MILLIGRAM, BID
     Route: 048
     Dates: start: 202110
  3. EPIDIOLEX [Suspect]
     Active Substance: CANNABIDIOL
     Indication: Focal dyscognitive seizures

REACTIONS (3)
  - Weight abnormal [Unknown]
  - Weight decreased [Unknown]
  - Prescribed overdose [Unknown]
